FAERS Safety Report 6193358-7 (Version None)
Quarter: 2009Q2

REPORT INFORMATION
  Report Type: 
  Country: None (occurrence: None)
  Receive Date: 20090514
  Receipt Date: 20090514
  Transmission Date: 20091009
  Serious: Yes (Other)
  Sender: FDA-Public Use
  Company Number: None

PATIENT
  Age: 43 Year
  Sex: Male
  Weight: 72.5755 kg

DRUGS (1)
  1. CIPRO [Suspect]
     Indication: PROSTATE INFECTION
     Dosage: 1 TWICE DAILY PO
     Route: 048
     Dates: start: 20090501, end: 20090503

REACTIONS (5)
  - GAIT DISTURBANCE [None]
  - PAIN IN EXTREMITY [None]
  - PARAESTHESIA [None]
  - SKIN IRRITATION [None]
  - TENDON PAIN [None]
